FAERS Safety Report 8464116-5 (Version None)
Quarter: 2012Q2

REPORT INFORMATION
  Report Type: 
  Country: None (occurrence: None)
  Receive Date: 20120625
  Receipt Date: 20120620
  Transmission Date: 20120825
  Serious: Yes (Life-Threatening)
  Sender: FDA-Public Use
  Company Number: JP-ASTRAZENECA-2012SE41746

PATIENT
  Age: 42 Day
  Sex: Female
  Weight: 3 kg

DRUGS (1)
  1. DIPRIVAN [Suspect]
     Indication: INDUCTION OF ANAESTHESIA
     Dosage: 1.5ML/H (4.6MG/KG/H)
     Route: 042

REACTIONS (1)
  - RESPIRATORY ARREST [None]
